FAERS Safety Report 23643891 (Version 1)
Quarter: 2024Q1

REPORT INFORMATION
  Report Type: Spontaneous
  Country: US (occurrence: None)
  Receive Date: 20240317
  Receipt Date: 20240317
  Transmission Date: 20240410
  Serious: Yes (Death, Hospitalization)
  Sender: FDA-Public Use
  Company Number: None

PATIENT
  Age: 64 Year
  Sex: Male
  Weight: 90 kg

DRUGS (2)
  1. DOCETAXEL [Suspect]
     Active Substance: DOCETAXEL\DOCETAXEL ANHYDROUS
     Indication: Prostate cancer
     Dates: end: 20231228
  2. DEVICE [Concomitant]
     Active Substance: DEVICE

REACTIONS (4)
  - Pneumonitis [None]
  - General physical health deterioration [None]
  - Acute respiratory distress syndrome [None]
  - Coma [None]

NARRATIVE: CASE EVENT DATE: 20231228
